FAERS Safety Report 7295480-0 (Version None)
Quarter: 2011Q1

REPORT INFORMATION
  Report Type: 
  Country: None (occurrence: None)
  Receive Date: 20110216
  Receipt Date: 20101201
  Transmission Date: 20110831
  Serious: No
  Sender: FDA-Public Use
  Company Number: US-ABBOTT-10P-163-0688827-00

PATIENT
  Sex: Male
  Weight: 93.07 kg

DRUGS (3)
  1. UNKNOWN MEDICATION [Concomitant]
     Indication: ARTHRALGIA
  2. SIMCOR [Suspect]
     Indication: HYPERLIPIDAEMIA
  3. UNKNOWN MEDICATION [Concomitant]

REACTIONS (2)
  - ARTHRALGIA [None]
  - PAIN IN EXTREMITY [None]
